FAERS Safety Report 9631692 (Version 1)
Quarter: 2013Q4

REPORT INFORMATION
  Report Type: Spontaneous
  Country: US (occurrence: US)
  Receive Date: 20131018
  Receipt Date: 20131018
  Transmission Date: 20140711
  Serious: Yes (Other)
  Sender: FDA-Public Use
  Company Number: US-UCBSA-100076

PATIENT
  Age: 73 Year
  Sex: Male

DRUGS (2)
  1. NEUPRO [Suspect]
     Dosage: 4MG
     Route: 062
  2. NEUPRO [Suspect]
     Dosage: 2MG
     Route: 062
     Dates: start: 201309

REACTIONS (3)
  - Bladder disorder [Unknown]
  - Local swelling [Unknown]
  - Eyelid ptosis [Unknown]
